FAERS Safety Report 5711605-X (Version None)
Quarter: 2008Q2

REPORT INFORMATION
  Report Type: 
  Country: None (occurrence: None)
  Receive Date: 20080421
  Receipt Date: 20080416
  Transmission Date: 20081010
  Serious: Yes (Congenital Anomaly)
  Sender: FDA-Public Use
  Company Number: FR-GILEAD-2008-0015758

PATIENT
  Age: 38 Year
  Sex: Female

DRUGS (4)
  1. TRUVADA [Suspect]
     Route: 065
     Dates: start: 20070328, end: 20070808
  2. EFAVIRENZ [Concomitant]
     Route: 065
     Dates: start: 20070328, end: 20070808
  3. LAMIVUDINE + ZIDOVUDINE [Concomitant]
     Route: 065
     Dates: start: 20070808
  4. LOPINAVIR AND RITONAVIR [Concomitant]
     Route: 065
     Dates: start: 20070808

REACTIONS (2)
  - PREGNANCY [None]
  - ULTRASOUND ANTENATAL SCREEN ABNORMAL [None]
